FAERS Safety Report 9324658 (Version 2)
Quarter: 2013Q2

REPORT INFORMATION
  Report Type: Spontaneous
  Country: US (occurrence: US)
  Receive Date: 20130603
  Receipt Date: 20130619
  Transmission Date: 20140414
  Serious: Yes (Hospitalization)
  Sender: FDA-Public Use
  Company Number: US-GLAXOSMITHKLINE-A1025116A

PATIENT
  Age: 58 Year
  Sex: Female
  Weight: 82.7 kg

DRUGS (2)
  1. TYKERB [Suspect]
     Indication: BRAIN NEOPLASM MALIGNANT
     Dosage: 1000MG PER DAY
     Route: 048
     Dates: start: 20120813
  2. TEMODAR [Concomitant]

REACTIONS (2)
  - Metastases to central nervous system [Unknown]
  - HER-2 positive breast cancer [Unknown]
